FAERS Safety Report 5123898-0 (Version None)
Quarter: 2006Q4

REPORT INFORMATION
  Report Type: 
  Country: None (occurrence: None)
  Receive Date: 20061010
  Receipt Date: 20060927
  Transmission Date: 20070319
  Serious: Yes (Death)
  Sender: FDA-Public Use
  Company Number: JP-BRISTOL-MYERS SQUIBB COMPANY-13531470

PATIENT
  Age: 43 Year
  Sex: Female

DRUGS (7)
  1. ARIPIPRAZOLE [Suspect]
     Indication: SCHIZOPHRENIA
     Dosage: DOSAGE FOR THIS DRUG KEPT CHANGING
     Route: 048
     Dates: start: 20060811
  2. PEROSPIRONE [Suspect]
     Indication: SCHIZOPHRENIA
     Route: 048
  3. PROMETHAZINE [Concomitant]
     Route: 048
  4. NITRAZEPAM [Concomitant]
     Route: 048
  5. BIPERIDEN HYDROCHLORIDE TAB [Concomitant]
  6. SENNOSIDE [Concomitant]
     Route: 048
  7. BROMPERIDOL [Concomitant]
     Route: 048

REACTIONS (1)
  - COMPLETED SUICIDE [None]
